FAERS Safety Report 10494898 (Version 1)
Quarter: 2014Q4

REPORT INFORMATION
  Report Type: Spontaneous
  Country: US (occurrence: None)
  Receive Date: 20141001
  Receipt Date: 20141001
  Transmission Date: 20150528
  Serious: Yes (Other)
  Sender: FDA-Public Use
  Company Number: AEGR000749

PATIENT
  Age: 36 Year
  Sex: Female
  Weight: 106.1 kg

DRUGS (3)
  1. LIPITOR(ATORVASTATIN CALCIUM) [Concomitant]
  2. JUXTAPID [Suspect]
     Active Substance: LOMITAPIDE MESYLATE
     Indication: TYPE IIA HYPERLIPIDAEMIA
     Dates: end: 20140304
  3. ZETIA(EZETIMIBE) [Concomitant]

REACTIONS (2)
  - Pulmonary mass [None]
  - Metastases to peritoneum [None]

NARRATIVE: CASE EVENT DATE: 20140827
